FAERS Safety Report 14205722 (Version 4)
Quarter: 2019Q1

REPORT INFORMATION
  Report Type: Report from Study
  Country: IT (occurrence: IT)
  Receive Date: 20171120
  Receipt Date: 20190108
  Transmission Date: 20190417
  Serious: Yes (Hospitalization)
  Sender: FDA-Public Use
  Company Number: IT-PFIZER INC-2017493737

PATIENT
  Age: 69 Year
  Sex: Male
  Weight: 75 kg

DRUGS (4)
  1. FLUOROURACIL EBEWE [Suspect]
     Active Substance: FLUOROURACIL
     Indication: COLORECTAL CANCER METASTATIC
     Dosage: 1 DF, CYCLIC, (Q2WK, ONCE EVERY TWO WEEKS)
     Dates: start: 20160705
  2. CALCIUM FOLINATE [Suspect]
     Active Substance: LEUCOVORIN CALCIUM
     Indication: COLORECTAL CANCER METASTATIC
     Dosage: 1 DF, CYCLIC,  (Q2WK, ONCE EVERY TWO WEEKS)
     Dates: start: 20160705
  3. OXALIPLATIN. [Suspect]
     Active Substance: OXALIPLATIN
     Indication: COLORECTAL CANCER METASTATIC
     Dosage: 1 DF, CYCLIC (Q2WK, ONCE EVERY TWO WEEKS)
     Dates: start: 20160705
  4. VECTIBIX [Suspect]
     Active Substance: PANITUMUMAB
     Indication: COLON CANCER METASTATIC
     Dosage: 400 MG, CYCLIC (Q2WK ONCE EVERY TWO WEEKS)
     Route: 042
     Dates: start: 20160705

REACTIONS (19)
  - Palmar-plantar erythrodysaesthesia syndrome [Recovered/Resolved]
  - Rash pustular [Recovered/Resolved]
  - Conjunctivitis [Unknown]
  - Alanine aminotransferase increased [Unknown]
  - Jaundice [Unknown]
  - Paronychia [Recovered/Resolved]
  - Nausea [Recovered/Resolved]
  - Vomiting [Recovered/Resolved]
  - Jaundice [Recovering/Resolving]
  - Constipation [Recovered/Resolved]
  - Palmar-plantar erythrodysaesthesia syndrome [Unknown]
  - Fatigue [Unknown]
  - Asthenia [Unknown]
  - Fatigue [Unknown]
  - Aspartate aminotransferase increased [Unknown]
  - Rash pustular [Unknown]
  - Conjunctivitis [Unknown]
  - Thrombocytopenia [Unknown]
  - Paronychia [Unknown]

NARRATIVE: CASE EVENT DATE: 2016
